FAERS Safety Report 5929372-3 (Version None)
Quarter: 2008Q4

REPORT INFORMATION
  Report Type: 
  Country: None (occurrence: None)
  Receive Date: 20081024
  Receipt Date: 20081021
  Transmission Date: 20090506
  Serious: Yes (Other)
  Sender: FDA-Public Use
  Company Number: US-ASTRAZENECA-2008UW23382

PATIENT
  Age: 73 Year
  Sex: Female
  Weight: 54.4 kg

DRUGS (12)
  1. ARIMIDEX [Suspect]
     Indication: BREAST CANCER
     Route: 048
     Dates: start: 20060401
  2. CRESTOR [Concomitant]
  3. NEXIUM [Concomitant]
  4. SYNTHROID [Concomitant]
  5. CALCIUM [Concomitant]
  6. MULTI-VITAMINS [Concomitant]
  7. CRANBERRY CAPSULES [Concomitant]
  8. FISH OIL [Concomitant]
  9. VITAMIN D [Concomitant]
  10. MAGNESIUM SULFATE [Concomitant]
  11. GENERIC FOSAMAX [Concomitant]
  12. ZIMAX [Concomitant]

REACTIONS (8)
  - ARTHRITIS [None]
  - AUTOIMMUNE THYROIDITIS [None]
  - DERMAL CYST [None]
  - OSTEOPOROSIS [None]
  - URINARY TRACT DISORDER [None]
  - VAGINAL DISORDER [None]
  - VAGINAL HAEMORRHAGE [None]
  - VAGINAL INFLAMMATION [None]
